APPROVED DRUG PRODUCT: METRONIDAZOLE
Active Ingredient: METRONIDAZOLE
Strength: 375MG
Dosage Form/Route: CAPSULE;ORAL
Application: A076522 | Product #001 | TE Code: AB
Applicant: CHARTWELL RX SCIENCES LLC
Approved: Jan 29, 2004 | RLD: No | RS: No | Type: RX